FAERS Safety Report 8366143-5 (Version None)
Quarter: 2012Q2

REPORT INFORMATION
  Report Type: 
  Country: None (occurrence: None)
  Receive Date: 20120517
  Receipt Date: 20120514
  Transmission Date: 20120825
  Serious: Yes (Other)
  Sender: FDA-Public Use
  Company Number: US-ASTRAZENECA-2011SE32251

PATIENT
  Age: 64 Year
  Sex: Female

DRUGS (12)
  1. NEXIUM [Suspect]
     Route: 048
     Dates: start: 20080924
  2. ZANTAC [Concomitant]
     Dosage: 1 TIME FOR 3 WEEKS
     Dates: start: 19930101
  3. NEXIUM [Suspect]
     Dosage: 2 TIMES A DAY
     Route: 048
     Dates: start: 20021102, end: 20120101
  4. HYDROCODONE BITARTRATE [Concomitant]
  5. NEXIUM [Suspect]
     Indication: GASTROOESOPHAGEAL REFLUX DISEASE
     Dosage: TWICE A DAY
     Route: 048
  6. BENICAR [Concomitant]
     Indication: BLOOD PRESSURE
  7. VITAMIN D [Concomitant]
     Indication: OSTEOPOROSIS
  8. TYLENOL (CAPLET) [Concomitant]
     Indication: ARTHRITIS
     Dates: start: 20090312
  9. ACIPHEX [Concomitant]
     Indication: GASTROOESOPHAGEAL REFLUX DISEASE
     Dosage: 1 TIME A DAY
     Dates: start: 20020613
  10. CALCIUM CARBONATE [Concomitant]
  11. CALCIUM [Concomitant]
     Indication: OSTEOPOROSIS
  12. NEXIUM [Suspect]
     Dosage: 1 TIME A DAY
     Route: 048
     Dates: start: 20010909, end: 20020101

REACTIONS (11)
  - ANKLE FRACTURE [None]
  - OSTEOPOROSIS [None]
  - LIGAMENT SPRAIN [None]
  - ARTHRITIS [None]
  - WRIST FRACTURE [None]
  - CALCIUM DEFICIENCY [None]
  - MENISCUS LESION [None]
  - VITAMIN D DEFICIENCY [None]
  - UPPER LIMB FRACTURE [None]
  - OSTEOARTHRITIS [None]
  - FOOT FRACTURE [None]
